FAERS Safety Report 11695903 (Version 1)
Quarter: 2015Q4

REPORT INFORMATION
  Report Type: Report from Study
  Country: JP (occurrence: JP)
  Receive Date: 20151104
  Receipt Date: 20151104
  Transmission Date: 20160304
  Serious: Yes (Death, Other)
  Sender: FDA-Public Use
  Company Number: PHHY2008JP22986

PATIENT
  Age: 65 Year
  Sex: Male
  Weight: 55 kg

DRUGS (6)
  1. ICL670A [Suspect]
     Active Substance: DEFERASIROX
     Route: 048
     Dates: start: 20080811, end: 20080908
  2. CEFZON [Concomitant]
     Active Substance: CEFDINIR
     Indication: TRIGEMINAL NEURALGIA
     Dosage: 300 MG, UNK
     Route: 048
     Dates: start: 20080714, end: 20081007
  3. ICL670A [Suspect]
     Active Substance: DEFERASIROX
     Indication: IRON OVERLOAD
     Dosage: 500 MG/DAY
     Route: 048
     Dates: start: 20080728, end: 20080803
  4. ICL670A [Suspect]
     Active Substance: DEFERASIROX
     Route: 048
     Dates: start: 20080728, end: 20080803
  5. TEGRETOL [Concomitant]
     Active Substance: CARBAMAZEPINE
     Indication: TRIGEMINAL NEURALGIA
     Dosage: 300 MG, UNK
     Route: 048
     Dates: start: 20070910, end: 20080908
  6. ICL670A [Suspect]
     Active Substance: DEFERASIROX
     Indication: MYELODYSPLASTIC SYNDROME
     Dosage: 500 MG/DAY
     Route: 048
     Dates: start: 20080811, end: 20080908

REACTIONS (3)
  - Cardiac failure acute [Fatal]
  - Myelodysplastic syndrome [Unknown]
  - Disease progression [Unknown]

NARRATIVE: CASE EVENT DATE: 20080922
